FAERS Safety Report 11868833 (Version 1)
Quarter: 2015Q4

REPORT INFORMATION
  Report Type: Report from Study
  Country: US (occurrence: US)
  Receive Date: 20151225
  Receipt Date: 20151225
  Transmission Date: 20160305
  Serious: Yes (Death, Hospitalization)
  Sender: FDA-Public Use
  Company Number: US-UCBSA-2015039419

PATIENT
  Age: 89 Year
  Sex: Female
  Weight: 45 kg

DRUGS (1)
  1. VIMPAT [Suspect]
     Active Substance: LACOSAMIDE
     Indication: SEIZURE
     Dosage: 400 MG, ONCE DAILY (2 OF THE 200 MG PILLS)
     Route: 048
     Dates: end: 20150319

REACTIONS (4)
  - Multiple fractures [Unknown]
  - Osteogenesis imperfecta [Unknown]
  - Death [Fatal]
  - Vitamin D deficiency [Unknown]

NARRATIVE: CASE EVENT DATE: 2013
